FAERS Safety Report 9049554 (Version 1)
Quarter: 2013Q1

REPORT INFORMATION
  Report Type: Spontaneous
  Country: AU (occurrence: AU)
  Receive Date: 20130205
  Receipt Date: 20130205
  Transmission Date: 20140127
  Serious: Yes (Hospitalization)
  Sender: FDA-Public Use
  Company Number: AU-MYLANLABS-2013S1001832

PATIENT
  Age: 54 Year
  Sex: Female

DRUGS (1)
  1. TRAMADOL [Suspect]
     Indication: SUICIDAL IDEATION
     Dosage: 3,000 MG OF TRAMADOL (20 SLOW-RELEASE PREPARATION TABLETS OF 150 MG EACH)
     Route: 048

REACTIONS (5)
  - Hypoglycaemia [Recovering/Resolving]
  - Intentional overdose [Recovering/Resolving]
  - Suicide attempt [Recovering/Resolving]
  - Convulsion [Recovering/Resolving]
  - Depressed level of consciousness [Recovered/Resolved]
